FAERS Safety Report 11055530 (Version 1)
Quarter: 2015Q2

REPORT INFORMATION
  Report Type: Spontaneous
  Country: US (occurrence: None)
  Receive Date: 20150421
  Receipt Date: 20150421
  Transmission Date: 20150821
  Serious: Yes (Other)
  Sender: FDA-Public Use
  Company Number: None

PATIENT
  Age: 49 Year
  Sex: Female

DRUGS (11)
  1. HYDROCORTISONE. [Concomitant]
     Active Substance: HYDROCORTISONE
  2. HORIZANT [Concomitant]
     Active Substance: GABAPENTIN ENACARBIL
  3. PRISTIQ EXTENDED RELEASE [Concomitant]
     Active Substance: DESVENLAFAXINE SUCCINATE
  4. GABAPENTIN. [Concomitant]
     Active Substance: GABAPENTIN
  5. METAXALONE. [Concomitant]
     Active Substance: METAXALONE
  6. CYCLAFEM 1/35 [Concomitant]
     Active Substance: ETHINYL ESTRADIOL\NORETHINDRONE
  7. MULTI-VITAMIN DAILY [Concomitant]
  8. STOOL SOFTENER [Concomitant]
     Active Substance: DOCUSATE CALCIUM
  9. FISH OIL [Concomitant]
     Active Substance: FISH OIL
  10. TECFIDERA [Suspect]
     Active Substance: DIMETHYL FUMARATE
     Indication: MULTIPLE SCLEROSIS
     Dosage: 1 CAPSULE, BID, ORAL
     Route: 048
     Dates: start: 20131203, end: 20150420
  11. WELLBUTRIN XL [Concomitant]
     Active Substance: BUPROPION HYDROCHLORIDE

REACTIONS (2)
  - Rash erythematous [None]
  - Rash pruritic [None]

NARRATIVE: CASE EVENT DATE: 20150420
